FAERS Safety Report 4864848-1 (Version None)
Quarter: 2005Q4

REPORT INFORMATION
  Report Type: 
  Country: None (occurrence: None)
  Receive Date: 20051201
  Receipt Date: 20050719
  Transmission Date: 20060501
  Serious: No
  Sender: FDA-Public Use
  Company Number: 2005PV000465

PATIENT
  Age: 67 Year
  Sex: Male
  Weight: 85.2762 kg

DRUGS (17)
  1. BYETTA [Suspect]
     Indication: DIABETES MELLITUS NON-INSULIN-DEPENDENT
     Dosage: 5 MCG;BID;SC
     Route: 058
     Dates: start: 20050714
  2. ACTOS [Concomitant]
  3. PHENTERMINE [Concomitant]
  4. ZOLOFT [Concomitant]
  5. COZAAR [Concomitant]
  6. ZETIA [Concomitant]
  7. NORVASC [Concomitant]
  8. INDAPAMIDE [Concomitant]
  9. METFORMIN HCL [Concomitant]
  10. FOLIC ACID [Concomitant]
  11. ASPIRIN [Concomitant]
  12. ZOCOR [Concomitant]
  13. KEFLEX [Concomitant]
  14. PRECOSE [Concomitant]
  15. RIFAMPIN [Concomitant]
  16. FOLGARD [Concomitant]
  17. GLYBURIDE [Concomitant]

REACTIONS (3)
  - BLOOD GLUCOSE DECREASED [None]
  - BLOOD GLUCOSE INCREASED [None]
  - INJECTION SITE PAIN [None]
